FAERS Safety Report 11822625 (Version 1)
Quarter: 2015Q4

REPORT INFORMATION
  Report Type: Spontaneous
  Country: US (occurrence: US)
  Receive Date: 20151210
  Receipt Date: 20151210
  Transmission Date: 20160305
  Serious: Yes (Hospitalization)
  Sender: FDA-Public Use
  Company Number: US-JNJFOC-20150614592

PATIENT
  Age: 67 Year
  Sex: Female

DRUGS (10)
  1. ALLOPURINOL. [Concomitant]
     Active Substance: ALLOPURINOL
  2. NAPROXEN. [Concomitant]
     Active Substance: NAPROXEN
  3. TRIAMCINOLONE [Concomitant]
     Active Substance: TRIAMCINOLONE
  4. FOLIC ACID. [Concomitant]
     Active Substance: FOLIC ACID
  5. FAMCICLOVIR. [Concomitant]
     Active Substance: FAMCICLOVIR
  6. XANAX [Concomitant]
     Active Substance: ALPRAZOLAM
  7. OMEPRAZOLE. [Concomitant]
     Active Substance: OMEPRAZOLE
  8. DAPSONE. [Concomitant]
     Active Substance: DAPSONE
  9. IMBRUVICA [Suspect]
     Active Substance: IBRUTINIB
     Indication: CHRONIC LYMPHOCYTIC LEUKAEMIA
     Route: 048
     Dates: start: 20140827
  10. CITALOPRAM [Concomitant]
     Active Substance: CITALOPRAM HYDROBROMIDE

REACTIONS (7)
  - Peripheral swelling [Recovered/Resolved]
  - Fatigue [Not Recovered/Not Resolved]
  - Lip haemorrhage [Recovered/Resolved]
  - Epistaxis [Recovered/Resolved]
  - Weight decreased [Recovered/Resolved]
  - Lip injury [Recovered/Resolved]
  - Stomatitis [Recovered/Resolved]

NARRATIVE: CASE EVENT DATE: 201409
